FAERS Safety Report 10723439 (Version 3)
Quarter: 2016Q1

REPORT INFORMATION
  Report Type: Spontaneous
  Country: JP (occurrence: JP)
  Receive Date: 20150120
  Receipt Date: 20160331
  Transmission Date: 20160525
  Serious: Yes (Hospitalization, Other)
  Sender: FDA-Public Use
  Company Number: JP-PFIZER INC-2015017761

PATIENT
  Age: 55 Year
  Sex: Male
  Weight: 56 kg

DRUGS (31)
  1. LEBENIN [Concomitant]
     Active Substance: LACTOBACILLUS ACIDOPHILUS\STREPTOCOCCUS FAECAIS
     Dosage: UNK
     Dates: start: 20140320, end: 20140326
  2. NEUTROGIN [Concomitant]
     Active Substance: LENOGRASTIM
     Dosage: UNK
     Dates: start: 20140418, end: 20140420
  3. VANCOMYCIN [Concomitant]
     Active Substance: VANCOMYCIN
     Dosage: UNK
     Dates: start: 20140425, end: 20140512
  4. CAMPTO [Suspect]
     Active Substance: IRINOTECAN
     Indication: APPENDIX CANCER
     Dosage: 240 MG (151.7 MG/M2), 1X/DAY
     Route: 041
     Dates: start: 20140313, end: 20140313
  5. ALOXI [Concomitant]
     Active Substance: PALONOSETRON HYDROCHLORIDE
     Dosage: UNK
     Dates: start: 20140313, end: 20140410
  6. CAMPTO [Suspect]
     Active Substance: IRINOTECAN
     Dosage: 240 MG (151.7 MG/M2), 1X/DAY
     Route: 041
     Dates: start: 20140327, end: 20140327
  7. LEVOFOLINATE [Suspect]
     Active Substance: LEVOLEUCOVORIN CALCIUM
     Dosage: 320 MG, (202.3 MG/M2) 1X/DAY
     Route: 041
     Dates: start: 20140410, end: 20140410
  8. 5-FU [Suspect]
     Active Substance: FLUOROURACIL
     Dosage: 640 MG (404.6 MG/M2), 1X/DAY
     Route: 040
     Dates: start: 20140410, end: 20140410
  9. FERROMIA [Concomitant]
     Active Substance: FERROUS CITRATE
     Dosage: UNK
     Dates: start: 20131027, end: 20140318
  10. SULPERAZON [Concomitant]
     Active Substance: CEFOPERAZONE SODIUM\SULBACTAM SODIUM
     Dosage: UNK
     Dates: start: 20140425, end: 20140512
  11. ERBITUX [Concomitant]
     Active Substance: CETUXIMAB
     Dosage: 400 MG/BODY
     Dates: start: 20140320
  12. DIPHENHYDRAMINE. [Concomitant]
     Active Substance: DIPHENHYDRAMINE
     Dosage: UNK
     Dates: start: 20140313, end: 20140410
  13. NEXIUM [Concomitant]
     Active Substance: ESOMEPRAZOLE MAGNESIUM
     Dosage: UNK
     Dates: start: 20130919, end: 20140918
  14. ERBITUX [Concomitant]
     Active Substance: CETUXIMAB
     Dosage: UNK
     Dates: start: 20140403
  15. DEXART [Concomitant]
     Active Substance: DEXAMETHASONE SODIUM PHOSPHATE
     Dosage: UNK
     Dates: start: 20140313, end: 20140410
  16. CEFMETAZON [Concomitant]
     Active Substance: CEFMETAZOLE SODIUM
     Dosage: UNK
     Dates: start: 20140418, end: 20140419
  17. CAMPTO [Suspect]
     Active Substance: IRINOTECAN
     Dosage: 240 MG (151.7 MG/M2), 1X/DAY
     Route: 041
     Dates: start: 20140410, end: 20140410
  18. LEVOFOLINATE [Suspect]
     Active Substance: LEVOLEUCOVORIN CALCIUM
     Indication: APPENDIX CANCER
     Dosage: 320 MG, (202.3 MG/M2) 1X/DAY
     Route: 041
     Dates: start: 20140313, end: 20140313
  19. ERBITUX [Concomitant]
     Active Substance: CETUXIMAB
     Dosage: UNK
     Dates: start: 20140417
  20. LOPEMIN [Concomitant]
     Active Substance: LOPERAMIDE HYDROCHLORIDE
     Dosage: UNK
     Dates: start: 20140320, end: 20140423
  21. CONCENTRATED RED CELLS [Concomitant]
     Active Substance: HUMAN RED BLOOD CELL
     Dosage: UNK
     Dates: start: 20140417, end: 20140417
  22. PLATELETS [Concomitant]
     Active Substance: HUMAN PLATELET, ALLOGENIC
     Dosage: UNK
     Dates: start: 20140418, end: 20140420
  23. LEVOFOLINATE [Suspect]
     Active Substance: LEVOLEUCOVORIN CALCIUM
     Dosage: 320 MG, (202.3 MG/M2) 1X/DAY
     Route: 041
     Dates: start: 20140327, end: 20140327
  24. 5-FU [Suspect]
     Active Substance: FLUOROURACIL
     Indication: APPENDIX CANCER
     Dosage: 640 MG (404.6 MG/M2), 1X/DAY
     Route: 040
     Dates: start: 20140313, end: 20140313
  25. CRAVIT [Concomitant]
     Active Substance: LEVOFLOXACIN
     Dosage: UNK
     Dates: start: 20140320, end: 20140324
  26. 5-FU [Suspect]
     Active Substance: FLUOROURACIL
     Dosage: 3800 MG, ALTERNATE DAY (2402 MG/M2/D1-2)
     Route: 041
     Dates: start: 20140313, end: 20140313
  27. 5-FU [Suspect]
     Active Substance: FLUOROURACIL
     Dosage: 640 MG (404.6 MG/M2), 1X/DAY
     Route: 040
     Dates: start: 20140327, end: 20140327
  28. 5-FU [Suspect]
     Active Substance: FLUOROURACIL
     Dosage: 3800 MG, ALTERNATE DAY (2402 MG/M2/D1-2)
     Route: 041
     Dates: start: 20140327, end: 20140327
  29. 5-FU [Suspect]
     Active Substance: FLUOROURACIL
     Dosage: 3800 MG, ALTERNATE DAY (2402 MG/M2/D1-2)
     Route: 041
     Dates: start: 20140410, end: 20140410
  30. ERBITUX [Concomitant]
     Active Substance: CETUXIMAB
     Indication: APPENDIX CANCER
     Dosage: CYCLIC (640 MG/BODY)
     Dates: start: 20140313
  31. MEROPEN /01250501/ [Concomitant]
     Active Substance: MEROPENEM
     Dosage: UNK
     Dates: start: 20140420, end: 20140424

REACTIONS (2)
  - Necrotising fasciitis [Recovered/Resolved]
  - Pancytopenia [Unknown]

NARRATIVE: CASE EVENT DATE: 2014
